FAERS Safety Report 16964296 (Version 1)
Quarter: 2019Q4

REPORT INFORMATION
  Report Type: Spontaneous
  Country: US (occurrence: US)
  Receive Date: 20191027
  Receipt Date: 20191027
  Transmission Date: 20200122
  Serious: Yes (Other)
  Sender: FDA-Public Use
  Company Number: None

PATIENT
  Age: 36 Year
  Sex: Female
  Weight: 72 kg

DRUGS (7)
  1. PROTONIX [Concomitant]
     Active Substance: PANTOPRAZOLE SODIUM
  2. THROAT COAT [Concomitant]
     Active Substance: MENTHOL
  3. PREBIOTICS [Concomitant]
  4. TRADITIONAL REMEDIES [Concomitant]
  5. PREVAICD AC [Concomitant]
  6. CEFDINIR. [Suspect]
     Active Substance: CEFDINIR
     Indication: PHARYNGITIS STREPTOCOCCAL
     Dosage: ?          QUANTITY:1 CAPSULE(S);?
     Route: 048
     Dates: start: 20191016, end: 20191022
  7. PROBIOTICS [Concomitant]
     Active Substance: PROBIOTICS NOS

REACTIONS (12)
  - Therapy cessation [None]
  - Back pain [None]
  - Burning sensation [None]
  - Crying [None]
  - Eructation [None]
  - Abdominal distension [None]
  - Gastrooesophageal reflux disease [None]
  - Chills [None]
  - Flatulence [None]
  - Arrhythmia [None]
  - Chest pain [None]
  - Gastritis [None]

NARRATIVE: CASE EVENT DATE: 20191018
